FAERS Safety Report 10581028 (Version 2)
Quarter: 2014Q4

REPORT INFORMATION
  Report Type: Spontaneous
  Country: CN (occurrence: CN)
  Receive Date: 20141113
  Receipt Date: 20141120
  Transmission Date: 20150529
  Serious: Yes (Hospitalization, Other)
  Sender: FDA-Public Use
  Company Number: CN-AMGEN-CHNSP2014087732

PATIENT
  Age: 8 Decade
  Sex: Female

DRUGS (3)
  1. ENBREL [Suspect]
     Active Substance: ETANERCEPT
     Indication: RHEUMATOID ARTHRITIS
     Dosage: 50 MG, SINGLE
     Route: 065
     Dates: start: 2014, end: 2014
  2. METHOTREXATE [Suspect]
     Active Substance: METHOTREXATE
     Indication: PRODUCT USED FOR UNKNOWN INDICATION
     Dosage: UNK
     Route: 065
     Dates: start: 2014, end: 2014
  3. ENBREL [Suspect]
     Active Substance: ETANERCEPT
     Dosage: 50 MG, SINGLE
     Route: 065
     Dates: start: 2014, end: 2014

REACTIONS (6)
  - Perineal infection [Not Recovered/Not Resolved]
  - Bone marrow failure [Not Recovered/Not Resolved]
  - Fungal infection [Not Recovered/Not Resolved]
  - Oral fungal infection [Not Recovered/Not Resolved]
  - Shock [Not Recovered/Not Resolved]
  - Joint contracture [Unknown]
